FAERS Safety Report 9408898 (Version 1)
Quarter: 2013Q3

REPORT INFORMATION
  Report Type: Report from Study
  Country: US (occurrence: US)
  Receive Date: 20130719
  Receipt Date: 20130719
  Transmission Date: 20140515
  Serious: Yes (Life-Threatening)
  Sender: FDA-Public Use
  Company Number: US-009507513-1307USA007052

PATIENT
  Sex: 0

DRUGS (2)
  1. DEXAMETHASONE [Suspect]
     Indication: PLASMA CELL MYELOMA
     Dosage: DEX40 MG (20 MG FOR PTS AGED} 75 Y) D1 , 8, 15, AND 22
  2. POMALIDOMIDE [Suspect]
     Dosage: 4 MG, QD,DAY 1-21/28 DAY CYCLE

REACTIONS (2)
  - Neutropenia [Unknown]
  - Pneumonia [Unknown]
